FAERS Safety Report 13942575 (Version 1)
Quarter: 2017Q3

REPORT INFORMATION
  Report Type: Spontaneous
  Country: US (occurrence: None)
  Receive Date: 20170907
  Receipt Date: 20170907
  Transmission Date: 20171127
  Serious: Yes (Hospitalization)
  Sender: FDA-Public Use
  Company Number: None

PATIENT
  Age: 79 Year
  Sex: Male
  Weight: 132.4 kg

DRUGS (2)
  1. LEUPROLIDE ACETATE. [Suspect]
     Active Substance: LEUPROLIDE ACETATE
     Dates: end: 20160921
  2. CASODEX [Suspect]
     Active Substance: BICALUTAMIDE
     Dates: end: 20161216

REACTIONS (6)
  - Anaemia [None]
  - Hypotension [None]
  - Blood pressure increased [None]
  - Syncope [None]
  - Haematochezia [None]
  - Fall [None]

NARRATIVE: CASE EVENT DATE: 20170810
